FAERS Safety Report 9279138 (Version 1)
Quarter: 2012Q4

REPORT INFORMATION
  Report Type: Spontaneous
  Country: US (occurrence: None)
  Receive Date: 20120925
  Receipt Date: 20120925
  Transmission Date: 20130627
  Serious: No
  Sender: FDA-Public Use
  Company Number: 2012S1000902

PATIENT
  Sex: Female

DRUGS (4)
  1. LIVALO (PITAVASTATIN) TABLETS 2 MG [Suspect]
     Indication: CHOLESTEROL HIGH
     Route: 048
     Dates: start: 201112, end: 20120820
  2. DIOVAN [Concomitant]
  3. NORVASC [Concomitant]
  4. METHOTREXATE [Concomitant]

REACTIONS (2)
  - Fatigue [None]
  - Bradycardia [None]
